FAERS Safety Report 8987384 (Version 1)
Quarter: 2012Q4

REPORT INFORMATION
  Report Type: 
  Country: BR (occurrence: BR)
  Receive Date: 20121226
  Receipt Date: 20121226
  Transmission Date: 20130627
  Serious: Yes (Life-Threatening, Hospitalization)
  Sender: FDA-Public Use
  Company Number: BR-ROCHE-1168895

PATIENT
  Age: 64 Year
  Sex: Female
  Weight: 54 kg

DRUGS (6)
  1. PEGASYS [Suspect]
     Indication: HEPATITIS C
     Route: 065
     Dates: start: 201110, end: 201209
  2. RIBAVIRIN [Suspect]
     Indication: HEPATITIS C
     Route: 048
     Dates: start: 201110, end: 201209
  3. RIBAVIRIN [Suspect]
     Route: 048
  4. VICTRELIS [Suspect]
     Indication: HEPATITIS C
     Route: 048
     Dates: start: 201110, end: 201209
  5. SELOKEN [Concomitant]
     Indication: HYPERTENSION
     Route: 048
  6. SELOKEN [Concomitant]
     Indication: PANIC DISORDER

REACTIONS (22)
  - Viral load increased [Not Recovered/Not Resolved]
  - Asthenia [Recovered/Resolved]
  - Dysphagia [Recovered/Resolved]
  - Vomiting [Recovered/Resolved]
  - Dyspepsia [Not Recovered/Not Resolved]
  - Pruritus [Unknown]
  - Pruritus [Unknown]
  - Erythema [Unknown]
  - Choking [Recovered/Resolved]
  - Weight decreased [Recovering/Resolving]
  - Anaemia [Recovered/Resolved]
  - Dental caries [Unknown]
  - Memory impairment [Not Recovered/Not Resolved]
  - Panic attack [Not Recovered/Not Resolved]
  - Alopecia [Not Recovered/Not Resolved]
  - Dysgeusia [Not Recovered/Not Resolved]
  - Parosmia [Not Recovered/Not Resolved]
  - Anxiety [Recovered/Resolved]
  - Nervousness [Recovered/Resolved]
  - Menopause [Unknown]
  - Nausea [Unknown]
  - Joint swelling [Not Recovered/Not Resolved]
